FAERS Safety Report 4536844-5 (Version None)
Quarter: 2004Q4

REPORT INFORMATION
  Report Type: 
  Country: None (occurrence: None)
  Receive Date: 20041223
  Receipt Date: 20040706
  Transmission Date: 20050328
  Serious: Yes (Other)
  Sender: FDA-Public Use
  Company Number: US-GLAXOSMITHKLINE-A0537534A

PATIENT
  Sex: Male

DRUGS (3)
  1. VENTOLIN [Suspect]
     Indication: ASTHMA
  2. PULMICORT [Suspect]
     Indication: ASTHMA
  3. IRON [Concomitant]

REACTIONS (12)
  - APGAR SCORE LOW [None]
  - CAESAREAN SECTION [None]
  - CARDIOVASCULAR DISORDER [None]
  - CEREBRAL PALSY [None]
  - DRUG EXPOSURE DURING PREGNANCY [None]
  - FOETAL DISTRESS SYNDROME [None]
  - FOETAL HEART RATE DECELERATION [None]
  - MECONIUM INCREASED [None]
  - NEONATAL DISORDER [None]
  - NERVE INJURY [None]
  - OXYGEN SATURATION DECREASED [None]
  - RESPIRATORY DEPRESSION [None]
